FAERS Safety Report 16640429 (Version 1)
Quarter: 2019Q3

REPORT INFORMATION
  Report Type: Spontaneous
  Country: GB (occurrence: GB)
  Receive Date: 20190728
  Receipt Date: 20190728
  Transmission Date: 20191004
  Serious: Yes (Life-Threatening)
  Sender: FDA-Public Use
  Company Number: PHHY2019GB174481

PATIENT
  Age: 22 Year
  Sex: Male

DRUGS (2)
  1. CEFTRIAXONE. [Suspect]
     Active Substance: CEFTRIAXONE
     Indication: GINGIVITIS
     Dosage: 1 G, UNK
     Route: 030
     Dates: start: 20190618, end: 20190618
  2. LIDOCAINE. [Suspect]
     Active Substance: LIDOCAINE
     Indication: GINGIVITIS
     Dosage: 3.5 ML, UNK (50MG/5ML)
     Route: 030
     Dates: start: 20190618, end: 20190618

REACTIONS (7)
  - Rash generalised [Recovered/Resolved]
  - Chest discomfort [Recovered/Resolved]
  - Salivary hypersecretion [Recovered/Resolved]
  - Lacrimation increased [Recovered/Resolved]
  - Hypersensitivity [Recovered/Resolved]
  - Rhinorrhoea [Recovered/Resolved]
  - Dyspnoea [Recovered/Resolved]

NARRATIVE: CASE EVENT DATE: 20190618
